FAERS Safety Report 24294088 (Version 2)
Quarter: 2025Q3

REPORT INFORMATION
  Report Type: Spontaneous
  Country: US (occurrence: US)
  Receive Date: 20240906
  Receipt Date: 20250905
  Transmission Date: 20251021
  Serious: No
  Sender: DOMPE FARMACEUTICI
  Company Number: US-FARMAPROD-202308-202404-1457

PATIENT
  Sex: Female

DRUGS (3)
  1. OXERVATE [Suspect]
     Active Substance: CENEGERMIN-BKBJ
     Indication: Neurotrophic keratopathy
     Route: 047
     Dates: start: 20240325, end: 20240607
  2. RESTASIS [Concomitant]
     Active Substance: CYCLOSPORINE
     Route: 061
     Dates: start: 20240523
  3. SYSTANE (HYPROMELLOSE 2910 (4000 MPA.S)) [Concomitant]
     Active Substance: HYPROMELLOSE 2910 (4000 MPA.S)
     Route: 061
     Dates: start: 20240307

REACTIONS (4)
  - Eye pain [Not Recovered/Not Resolved]
  - Headache [Unknown]
  - Therapy partial responder [Not Recovered/Not Resolved]
  - Condition aggravated [Not Recovered/Not Resolved]
